FAERS Safety Report 21955731 (Version 2)
Quarter: 2025Q2

REPORT INFORMATION
  Report Type: Spontaneous
  Country: DE (occurrence: DE)
  Receive Date: 20230206
  Receipt Date: 20250603
  Transmission Date: 20250716
  Serious: Yes (Other)
  Sender: AUROBINDO
  Company Number: DE-LUNDBECK-DKLU3057039

PATIENT
  Age: 24 Year
  Sex: Female

DRUGS (5)
  1. CITALOPRAM [Suspect]
     Active Substance: CITALOPRAM
     Indication: Depression
     Dosage: 20 MILLIGRAM, ONCE A DAY
     Route: 065
  2. TEA LEAF [Suspect]
     Active Substance: TEA LEAF
     Indication: Product used for unknown indication
     Route: 065
  3. VANCOMYCIN [Concomitant]
     Active Substance: VANCOMYCIN
     Indication: Product used for unknown indication
     Route: 048
  4. CARNITINE [Concomitant]
     Active Substance: CARNITINE
     Indication: Product used for unknown indication
     Route: 065
  5. RIBOFLAVIN [Concomitant]
     Active Substance: RIBOFLAVIN
     Indication: Product used for unknown indication
     Route: 065

REACTIONS (1)
  - Drug-induced liver injury [Recovering/Resolving]
